FAERS Safety Report 14168353 (Version 1)
Quarter: 2017Q4

REPORT INFORMATION
  Report Type: Spontaneous
  Country: US (occurrence: US)
  Receive Date: 20171108
  Receipt Date: 20171108
  Transmission Date: 20180321
  Serious: No
  Sender: FDA-Public Use
  Company Number: US-WEST-WARD PHARMACEUTICALS CORP.-US-H14001-17-02258

PATIENT
  Age: 9 Year
  Sex: Male
  Weight: 29.96 kg

DRUGS (7)
  1. OXCARBAZEPINE. [Suspect]
     Active Substance: OXCARBAZEPINE
     Indication: SEIZURE
     Route: 048
     Dates: start: 20170620, end: 20170624
  2. DAILY SUPPLEMENTS [Concomitant]
     Indication: PRODUCT USED FOR UNKNOWN INDICATION
     Route: 065
  3. GLENMARK^S OXCARBAZEPINE [Concomitant]
     Indication: SEIZURE
     Route: 048
     Dates: start: 20170607, end: 20170611
  4. AMANTADINE. [Concomitant]
     Active Substance: AMANTADINE HYDROCHLORIDE
     Indication: PRODUCT USED FOR UNKNOWN INDICATION
     Route: 065
  5. GLENMARK^S OXCARBAZEPINE [Concomitant]
     Route: 048
     Dates: start: 20170612, end: 201706
  6. CLONIDINE. [Concomitant]
     Active Substance: CLONIDINE
     Indication: PRODUCT USED FOR UNKNOWN INDICATION
     Route: 065
  7. GLENMARK^S OXCARBAZEPINE [Concomitant]
     Route: 048
     Dates: start: 201706

REACTIONS (4)
  - Abdominal pain upper [Unknown]
  - Tic [Recovered/Resolved]
  - Irritability [Not Recovered/Not Resolved]
  - Hyperhidrosis [Recovered/Resolved]

NARRATIVE: CASE EVENT DATE: 201706
